FAERS Safety Report 7794860-4 (Version None)
Quarter: 2011Q4

REPORT INFORMATION
  Report Type: 
  Country: None (occurrence: None)
  Receive Date: 20111004
  Receipt Date: 20110922
  Transmission Date: 20120403
  Serious: Yes (Life-Threatening, Hospitalization, Other)
  Sender: FDA-Public Use
  Company Number: PHHY2011JP71271

PATIENT
  Sex: Female

DRUGS (3)
  1. RASILEZ [Suspect]
     Dosage: 150 MG, QD
     Route: 048
     Dates: end: 20110801
  2. ANGIOTENSIN II ANTAGONISTS [Suspect]
     Dosage: UNK UKN, UNK
     Route: 048
  3. ALDACTONE [Suspect]
     Dosage: UNK
     Dates: end: 20110801

REACTIONS (1)
  - RENAL FAILURE ACUTE [None]
